FAERS Safety Report 8572861-6 (Version None)
Quarter: 2012Q3

REPORT INFORMATION
  Report Type: 
  Country: None (occurrence: None)
  Receive Date: 20120806
  Receipt Date: 20120724
  Transmission Date: 20120928
  Serious: No
  Sender: FDA-Public Use
  Company Number: US-ASTRAZENECA-2011SE40586

PATIENT
  Age: 70 Year
  Sex: Female

DRUGS (3)
  1. ZOMIG [Suspect]
     Dosage: 2.5 MG, SOMETIMES TAKES TWO A DAY
     Route: 048
  2. AMOXICILLIN [Concomitant]
  3. ZOMIG [Suspect]
     Route: 048

REACTIONS (6)
  - DRUG DOSE OMISSION [None]
  - HEADACHE [None]
  - MALAISE [None]
  - PAIN [None]
  - OROPHARYNGEAL PAIN [None]
  - STRESS [None]
